FAERS Safety Report 10625733 (Version 1)
Quarter: 2014Q4

REPORT INFORMATION
  Report Type: Spontaneous
  Country: US (occurrence: None)
  Receive Date: 20141203
  Receipt Date: 20141203
  Transmission Date: 20150529
  Serious: No
  Sender: FDA-Public Use
  Company Number: ALL1-2008-02023

PATIENT
  Age: 8 Year
  Sex: Male
  Weight: 23.6 kg

DRUGS (1)
  1. DAYTRANA [Suspect]
     Active Substance: METHYLPHENIDATE
     Indication: ATTENTION DEFICIT/HYPERACTIVITY DISORDER
     Dosage: TRANSDERMAL
     Route: 048
     Dates: start: 2006, end: 200806

REACTIONS (1)
  - Vitiligo [None]

NARRATIVE: CASE EVENT DATE: 200806
